FAERS Safety Report 15490931 (Version 7)
Quarter: 2019Q1

REPORT INFORMATION
  Report Type: Spontaneous
  Country: PT (occurrence: PT)
  Receive Date: 20181012
  Receipt Date: 20190120
  Transmission Date: 20190417
  Serious: Yes (Hospitalization, Other)
  Sender: FDA-Public Use
  Company Number: PT-AUROBINDO-AUR-APL-2018-049618

PATIENT
  Age: 11 Year
  Sex: Male

DRUGS (11)
  1. AMOXICILLIN. [Concomitant]
     Active Substance: AMOXICILLIN
     Indication: PHARYNGITIS
  2. LEVETIRACETAM. [Concomitant]
     Active Substance: LEVETIRACETAM
     Indication: EPILEPSY
     Dosage: UNK
     Route: 065
  3. CLEMASTIN [Concomitant]
     Active Substance: CLEMASTINE
     Indication: ANGIOEDEMA
     Dosage: UNK
     Route: 065
  4. CLARITHROMYCIN. [Concomitant]
     Active Substance: CLARITHROMYCIN
     Indication: PHARYNGITIS
  5. AMOXICILLIN. [Concomitant]
     Active Substance: AMOXICILLIN
     Indication: PHARYNGITIS STREPTOCOCCAL
     Dosage: UNK
     Route: 065
  6. CLARITHROMYCIN. [Concomitant]
     Active Substance: CLARITHROMYCIN
     Indication: PHARYNGITIS STREPTOCOCCAL
     Dosage: UNK
     Route: 065
  7. CLEMASTIN [Concomitant]
     Active Substance: CLEMASTINE
     Indication: LYMPHADENOPATHY
  8. VALPROIC ACID. [Interacting]
     Active Substance: VALPROIC ACID
     Indication: EPILEPSY
     Dosage: UNK
     Route: 065
  9. LAMOTRIGINE TABLET [Suspect]
     Active Substance: LAMOTRIGINE
     Indication: EPILEPSY
     Dosage: UNK
     Route: 065
  10. CLEMASTIN [Concomitant]
     Active Substance: CLEMASTINE
     Indication: CHEILITIS
  11. CLEMASTIN [Concomitant]
     Active Substance: CLEMASTINE
     Indication: FACE OEDEMA

REACTIONS (14)
  - Lip erosion [Recovered/Resolved]
  - Leukopenia [Recovering/Resolving]
  - Angioedema [Recovered/Resolved]
  - Drug interaction [Recovered/Resolved]
  - Drug reaction with eosinophilia and systemic symptoms [Recovered/Resolved]
  - Rash [Recovered/Resolved]
  - Thrombocytopenia [Recovering/Resolving]
  - Pyrexia [Recovered/Resolved]
  - Cheilitis [Recovered/Resolved]
  - Conjunctival hyperaemia [Recovered/Resolved]
  - Conjunctivitis [Recovering/Resolving]
  - Transaminases increased [Recovered/Resolved]
  - Lymphadenopathy [Recovered/Resolved]
  - Face oedema [Recovered/Resolved]
